FAERS Safety Report 23289231 (Version 1)
Quarter: 2023Q4

REPORT INFORMATION
  Report Type: Spontaneous
  Country: US (occurrence: None)
  Receive Date: 20231211
  Receipt Date: 20231211
  Transmission Date: 20240110
  Serious: Yes (Hospitalization)
  Sender: FDA-Public Use
  Company Number: None

PATIENT
  Sex: Female

DRUGS (2)
  1. VIGABATRIN [Suspect]
     Active Substance: VIGABATRIN
     Indication: Partial seizures
     Dosage: FREQUENCY : DAILY;?
     Route: 048
  2. EPIDIOLEX [Concomitant]
     Active Substance: CANNABIDIOL

REACTIONS (1)
  - Hospitalisation [None]
